FAERS Safety Report 7701165-6 (Version None)
Quarter: 2011Q3

REPORT INFORMATION
  Report Type: 
  Country: None (occurrence: None)
  Receive Date: 20110819
  Receipt Date: 20110819
  Transmission Date: 20111222
  Serious: Yes (Other)
  Sender: FDA-Public Use
  Company Number: None

PATIENT
  Age: 58 Year
  Sex: Male

DRUGS (1)
  1. RIBASPHERE [Suspect]
     Dosage: 800MG BID PO
     Route: 048
     Dates: start: 20110726, end: 20110817

REACTIONS (4)
  - PYREXIA [None]
  - VOMITING [None]
  - INSOMNIA [None]
  - DIARRHOEA [None]
